FAERS Safety Report 7497046-6 (Version None)
Quarter: 2011Q2

REPORT INFORMATION
  Report Type: 
  Country: None (occurrence: None)
  Receive Date: 20110523
  Receipt Date: 20110511
  Transmission Date: 20111010
  Serious: Yes (Other)
  Sender: FDA-Public Use
  Company Number: TN-JNJFOC-20110508686

PATIENT
  Age: 59 Year
  Sex: Female

DRUGS (2)
  1. NIZORAL [Suspect]
     Indication: KERATITIS FUNGAL
     Route: 065
  2. FUNGIZONE [Suspect]
     Indication: KERATITIS FUNGAL
     Route: 047

REACTIONS (2)
  - CORNEAL SCAR [None]
  - DRUG INEFFECTIVE [None]
